FAERS Safety Report 7802102-6 (Version None)
Quarter: 2011Q4

REPORT INFORMATION
  Report Type: 
  Country: None (occurrence: None)
  Receive Date: 20111007
  Receipt Date: 20110922
  Transmission Date: 20120403
  Serious: Yes (Other)
  Sender: FDA-Public Use
  Company Number: PHHY2011BR84952

PATIENT
  Sex: Female
  Weight: 47 kg

DRUGS (7)
  1. DIOVAN [Suspect]
     Indication: HYPERTENSION
     Dosage: 80 MG
     Dates: start: 20040305
  2. CERAZETTE [Concomitant]
     Indication: ENDOMETRIOSIS
     Dosage: 75 MG, UNK
  3. AMLODIPINE [Concomitant]
     Dosage: 2.5 MG
  4. ARADOIS H [Concomitant]
     Dosage: 1 DF, (12.5/100 MG)
  5. LOSARTAN POTASSIUM AND HYDROCHLOROTHIAZIDE [Concomitant]
     Dosage: 1 DF, (100/2.5 MG)
  6. STEROIDS NOS [Concomitant]
     Indication: SKIN LESION
     Route: 061
  7. LOSARTAN POTASSIUM AND HYDROCHLOROTHIAZIDE [Concomitant]
     Dosage: 1 DF, (50/2.5 MG PER DAY)

REACTIONS (11)
  - PROTEINURIA [None]
  - RENAL IMPAIRMENT [None]
  - WEIGHT INCREASED [None]
  - CUTANEOUS LUPUS ERYTHEMATOSUS [None]
  - HYPERTENSION [None]
  - SKIN LESION [None]
  - GLOMERULOSCLEROSIS [None]
  - PSYCHIATRIC SYMPTOM [None]
  - LOSS OF LIBIDO [None]
  - FATIGUE [None]
  - ABDOMINAL PAIN [None]
